FAERS Safety Report 6813667-5 (Version None)
Quarter: 2010Q3

REPORT INFORMATION
  Report Type: 
  Country: None (occurrence: None)
  Receive Date: 20100701
  Receipt Date: 20100623
  Transmission Date: 20110219
  Serious: Yes (Hospitalization)
  Sender: FDA-Public Use
  Company Number: JP-ELI_LILLY_AND_COMPANY-JP201006006270

PATIENT
  Age: 63 Year
  Sex: Male

DRUGS (4)
  1. ALIMTA [Suspect]
     Indication: NON-SMALL CELL LUNG CANCER
     Dosage: UNK, OTHER
     Route: 042
     Dates: end: 20100528
  2. CISPLATIN [Concomitant]
     Indication: NON-SMALL CELL LUNG CANCER
     Dosage: UNK, UNKNOWN
     Route: 042
     Dates: end: 20100528
  3. PANVITAN [Concomitant]
     Dosage: UNK, DAILY (1/D)
     Route: 048
  4. HYDROXOCOBALAMIN ACETATE [Concomitant]
     Dosage: UNK, OTHER
     Route: 030

REACTIONS (1)
  - PULMONARY INFARCTION [None]
